FAERS Safety Report 10448726 (Version 1)
Quarter: 2014Q3

REPORT INFORMATION
  Report Type: Spontaneous
  Country: GB (occurrence: GB)
  Receive Date: 20140912
  Receipt Date: 20140912
  Transmission Date: 20150326
  Serious: Yes (Hospitalization, Other)
  Sender: FDA-Public Use
  Company Number: GB-009507513-1409GBR002223

PATIENT
  Age: 76 Year
  Sex: Male

DRUGS (1)
  1. CARBIDOPA (+) LEVODOPA [Suspect]
     Active Substance: CARBIDOPA\LEVODOPA
     Route: 048

REACTIONS (7)
  - Aggression [Unknown]
  - Confusional state [Unknown]
  - Unresponsive to stimuli [Unknown]
  - Incorrect drug dosage form administered [Unknown]
  - Drug dispensing error [Unknown]
  - Hyponatraemia [Unknown]
  - Agitation [Unknown]

NARRATIVE: CASE EVENT DATE: 20140102
